FAERS Safety Report 18654803 (Version 1)
Quarter: 2020Q4

REPORT INFORMATION
  Report Type: Spontaneous
  Country: US (occurrence: US)
  Receive Date: 20201223
  Receipt Date: 20201223
  Transmission Date: 20210114
  Serious: No
  Sender: FDA-Public Use
  Company Number: US-PFIZER INC-2020503442

PATIENT
  Age: 11 Year
  Sex: Male
  Weight: 31.75 kg

DRUGS (1)
  1. GENOTROPIN [Suspect]
     Active Substance: SOMATROPIN
     Indication: GROWTH HORMONE DEFICIENCY
     Dosage: 1 MG, 1X/DAY

REACTIONS (7)
  - Device issue [Unknown]
  - Poor quality device used [Unknown]
  - Illness [Unknown]
  - Injection site pain [Unknown]
  - Device use error [Unknown]
  - Device leakage [Unknown]
  - Headache [Unknown]
